FAERS Safety Report 9288517 (Version 1)
Quarter: 2013Q2

REPORT INFORMATION
  Report Type: Spontaneous
  Country: US (occurrence: None)
  Receive Date: 20130509
  Receipt Date: 20130509
  Transmission Date: 20140414
  Serious: Yes (Hospitalization)
  Sender: FDA-Public Use
  Company Number: FK201301379

PATIENT
  Age: 52 Year
  Sex: Female

DRUGS (5)
  1. BUPIVACAINE [Suspect]
     Indication: NERVE BLOCK
     Dosage: INTERSCALENE-150 MG??
  2. BUPIVACAINE [Suspect]
     Indication: POSTOPERATIVE ANALGESIA
     Dosage: INTERSCALENE-150 MG??
  3. PROPOFOL (PROPOFOL) [Concomitant]
  4. HEPARIN (HEPARIN) [Concomitant]
  5. HYDROMORPHONE (HYDROMORPHONE) [Concomitant]

REACTIONS (4)
  - Phrenic nerve paralysis [None]
  - Diaphragmatic paralysis [None]
  - Atelectasis [None]
  - Pneumonia [None]
